FAERS Safety Report 9380720 (Version 7)
Quarter: 2017Q2

REPORT INFORMATION
  Report Type: Report from Study
  Country: NL (occurrence: NL)
  Receive Date: 20130702
  Receipt Date: 20170403
  Transmission Date: 20170912
  Serious: Yes (Hospitalization)
  Sender: FDA-Public Use
  Company Number: NL-JNJFOC-20130700097

PATIENT
  Age: 64 Year
  Sex: Male
  Weight: 85.1 kg

DRUGS (21)
  1. BISOPROLOL [Concomitant]
     Active Substance: BISOPROLOL
     Indication: CARDIOVASCULAR EVENT PROPHYLAXIS
     Route: 048
     Dates: start: 20070619
  2. TOPICORTE [Concomitant]
     Active Substance: DESOXIMETASONE
     Route: 048
     Dates: start: 20121207
  3. CANAGLIFLOZIN [Suspect]
     Active Substance: CANAGLIFLOZIN
     Route: 048
  4. ASCAL [Concomitant]
     Active Substance: CARBASPIRIN
     Indication: PROPHYLAXIS
     Route: 048
     Dates: start: 20120526
  5. ASCAL [Concomitant]
     Active Substance: CARBASPIRIN
     Indication: PROPHYLAXIS
     Route: 048
     Dates: start: 20070619, end: 20111201
  6. LANTUS [Concomitant]
     Indication: DIABETES MELLITUS
     Dates: start: 20121203, end: 20121210
  7. SPIRIVA [Concomitant]
     Indication: ASTHMA
     Route: 045
     Dates: start: 2000
  8. IBUPROFEN [Concomitant]
     Route: 048
     Dates: start: 20120604, end: 20120609
  9. LANTUS [Concomitant]
     Indication: DIABETES MELLITUS
     Dates: start: 20091112
  10. LANTUS [Concomitant]
     Indication: DIABETES MELLITUS
     Dates: start: 20101103, end: 20121203
  11. SYMBICORT [Concomitant]
     Indication: ASTHMA
     Route: 055
     Dates: start: 2000
  12. PARACETAMOL [Concomitant]
     Active Substance: ACETAMINOPHEN
     Route: 048
     Dates: start: 20120526, end: 20120604
  13. LANTUS [Concomitant]
     Indication: DIABETES MELLITUS
     Dates: start: 20130510
  14. METFORMIN [Concomitant]
     Indication: DIABETES MELLITUS
     Dates: start: 200803
  15. KETOCONAZOLE SHAMPOO [Concomitant]
     Active Substance: KETOCONAZOLE
     Route: 062
     Dates: start: 20110805
  16. ASCAL [Concomitant]
     Active Substance: CARBASPIRIN
     Indication: PROPHYLAXIS
     Route: 048
     Dates: start: 20111209, end: 20120523
  17. DERMOVATE [Concomitant]
     Active Substance: CLOBETASOL
     Route: 061
     Dates: start: 20121207
  18. LANTUS [Concomitant]
     Indication: DIABETES MELLITUS
     Dates: start: 20121210, end: 20130507
  19. CRESTOR [Concomitant]
     Indication: PROPHYLAXIS
     Route: 048
     Dates: start: 20070619
  20. LANTUS [Concomitant]
     Indication: DIABETES MELLITUS
     Dates: start: 20130507, end: 20130510
  21. LISINOPRIL [Concomitant]
     Indication: NEPHROPATHY
     Route: 048
     Dates: start: 20090526

REACTIONS (1)
  - Transitional cell carcinoma [Recovered/Resolved]

NARRATIVE: CASE EVENT DATE: 201206
